FAERS Safety Report 15863723 (Version 1)
Quarter: 2019Q1

REPORT INFORMATION
  Report Type: Spontaneous
  Country: US (occurrence: US)
  Receive Date: 20190122
  Receipt Date: 20190122
  Transmission Date: 20190417
  Serious: No
  Sender: FDA-Public Use
  Company Number: None

PATIENT
  Age: 42 Year
  Sex: Female

DRUGS (1)
  1. CAPECITABINE TAB 500MG [Suspect]
     Active Substance: CAPECITABINE

REACTIONS (7)
  - Muscular weakness [None]
  - Hyperkeratosis [None]
  - Paraesthesia [None]
  - Dysstasia [None]
  - Asthenia [None]
  - Skin exfoliation [None]
  - Hypoaesthesia [None]

NARRATIVE: CASE EVENT DATE: 20190122
